FAERS Safety Report 8169344-4 (Version None)
Quarter: 2012Q1

REPORT INFORMATION
  Report Type: 
  Country: None (occurrence: None)
  Receive Date: 20120228
  Receipt Date: 20120213
  Transmission Date: 20120608
  Serious: Yes (Other)
  Sender: FDA-Public Use
  Company Number: MY-RANBAXY-2012R3-52788

PATIENT
  Age: 37 Year
  Sex: Female

DRUGS (4)
  1. BROMHEXINE [Concomitant]
     Indication: PRODUCT USED FOR UNKNOWN INDICATION
     Dosage: UNK
     Route: 065
  2. AMOXICILLIN AND CLAVULANATE POTASSIUM [Suspect]
     Indication: PNEUMONIA
     Dosage: 4G, DAILY
     Route: 042
  3. ERYTHROMYCIN [Suspect]
     Indication: PNEUMONIA
     Dosage: 2G, DAILY
     Route: 048
  4. ALBUTEROL [Concomitant]
     Indication: PRODUCT USED FOR UNKNOWN INDICATION
     Dosage: UNK
     Route: 065

REACTIONS (2)
  - PERIORBITAL OEDEMA [None]
  - URTICARIA [None]
